FAERS Safety Report 15715773 (Version 4)
Quarter: 2019Q1

REPORT INFORMATION
  Report Type: Spontaneous
  Country: JP (occurrence: JP)
  Receive Date: 20181212
  Receipt Date: 20190130
  Transmission Date: 20190417
  Serious: Yes (Other)
  Sender: FDA-Public Use
  Company Number: JP-VIFOR (INTERNATIONAL) INC.-VIT-2018-11514

PATIENT
  Age: 77 Year
  Sex: Female

DRUGS (5)
  1. MIRCERA [Suspect]
     Active Substance: METHOXY POLYETHYLENE GLYCOL-EPOETIN BETA
     Route: 058
     Dates: start: 201810
  2. EPOGIN S [Suspect]
     Active Substance: ERYTHROPOIETIN
     Indication: NEPHROGENIC ANAEMIA
     Route: 042
     Dates: start: 20180921, end: 20181013
  3. CARTIN FF [Concomitant]
     Dosage: DOSAGE UNCERTAIN
     Route: 065
     Dates: start: 20180808
  4. FESIN [Concomitant]
     Active Substance: IRON SUCROSE
     Dosage: DOSAGE UNCERTAIN
     Route: 065
     Dates: start: 20180905
  5. MIRCERA [Suspect]
     Active Substance: METHOXY POLYETHYLENE GLYCOL-EPOETIN BETA
     Indication: NEPHROGENIC ANAEMIA
     Route: 058
     Dates: start: 20180919, end: 20181011

REACTIONS (5)
  - Vitamin C deficiency [Recovered/Resolved]
  - Chronic kidney disease-mineral and bone disorder [Unknown]
  - Anaemia [Not Recovered/Not Resolved]
  - Zinc deficiency [Recovered/Resolved]
  - Aplasia pure red cell [Unknown]

NARRATIVE: CASE EVENT DATE: 201810
